FAERS Safety Report 6067190-9 (Version None)
Quarter: 2009Q1

REPORT INFORMATION
  Report Type: 
  Country: None (occurrence: None)
  Receive Date: 20090204
  Receipt Date: 20090204
  Transmission Date: 20090719
  Serious: Yes (Life-Threatening, Hospitalization)
  Sender: FDA-Public Use
  Company Number: None

PATIENT

DRUGS (1)
  1. ADRIAMYCIN PFS [Suspect]

REACTIONS (4)
  - CARDIAC FAILURE CONGESTIVE [None]
  - DYSPNOEA PAROXYSMAL NOCTURNAL [None]
  - LEFT VENTRICULAR DYSFUNCTION [None]
  - ORTHOPNOEA [None]
